FAERS Safety Report 19719509 (Version 1)
Quarter: 2021Q3

REPORT INFORMATION
  Report Type: Spontaneous
  Country: FR (occurrence: FR)
  Receive Date: 20210818
  Receipt Date: 20210818
  Transmission Date: 20211014
  Serious: Yes (Life-Threatening, Hospitalization, Other)
  Sender: FDA-Public Use
  Company Number: FR-MYLANLABS-2021M1051617

PATIENT
  Age: 75 Year
  Sex: Male
  Weight: 65 kg

DRUGS (5)
  1. MIDAZOLAM. [Suspect]
     Active Substance: MIDAZOLAM
     Indication: SEDATIVE THERAPY
     Dosage: 1 MILLIGRAM
     Route: 042
     Dates: start: 20210211, end: 20210211
  2. HEPARINE SODIQUE [Suspect]
     Active Substance: HEPARIN SODIUM
     Indication: THROMBOSIS PROPHYLAXIS
     Dosage: 3000 INTERNATIONAL UNIT
     Route: 042
     Dates: start: 20210211, end: 20210211
  3. LIDOCAINE                          /00033402/ [Suspect]
     Active Substance: LIDOCAINE
     Indication: LOCAL ANAESTHESIA
     Dosage: INCONNUE
     Route: 058
     Dates: start: 20210211, end: 20210211
  4. SUFENTA [Suspect]
     Active Substance: SUFENTANIL CITRATE
     Indication: ANALGESIC THERAPY
     Dosage: 2.5 MICROGRAM, TOTAL
     Route: 042
     Dates: start: 20210211, end: 20210211
  5. PARACETAMOL [Suspect]
     Active Substance: ACETAMINOPHEN
     Indication: ANALGESIC INTERVENTION SUPPORTIVE THERAPY
     Dosage: 1 GRAM
     Route: 042
     Dates: start: 20210211, end: 20210211

REACTIONS (1)
  - Circulatory collapse [Recovering/Resolving]

NARRATIVE: CASE EVENT DATE: 20210211
